FAERS Safety Report 9354468 (Version 1)
Quarter: 2013Q2

REPORT INFORMATION
  Report Type: Spontaneous
  Country: FR (occurrence: FR)
  Receive Date: 20130618
  Receipt Date: 20130618
  Transmission Date: 20140414
  Serious: Yes (Hospitalization, Other)
  Sender: FDA-Public Use
  Company Number: FR-TEVA-412944ISR

PATIENT
  Age: 79 Year
  Sex: Male
  Weight: 70 kg

DRUGS (2)
  1. FUROSEMIDE 40 MG TEVA [Suspect]
     Indication: CARDIAC DISORDER
     Dosage: 80 MILLIGRAM DAILY; IN THE MORNING
     Route: 048
  2. FUROSEMIDE 40 MG TEVA [Suspect]
     Indication: OEDEMA

REACTIONS (12)
  - Intracranial haematoma [Unknown]
  - Head injury [Unknown]
  - Fall [Unknown]
  - Diabetes mellitus [Unknown]
  - Oedema peripheral [Unknown]
  - Fatigue [Unknown]
  - Daydreaming [Unknown]
  - Oedema peripheral [Unknown]
  - Swelling [Unknown]
  - Confusional state [Unknown]
  - Dysarthria [Unknown]
  - Bradyphrenia [Unknown]
